FAERS Safety Report 4853352-2 (Version None)
Quarter: 2005Q4

REPORT INFORMATION
  Report Type: 
  Country: None (occurrence: None)
  Receive Date: 20051212
  Receipt Date: 20051223
  Transmission Date: 20060501
  Serious: Yes (Other)
  Sender: FDA-Public Use
  Company Number: GBS050918527

PATIENT
  Sex: Female

DRUGS (2)
  1. OLANZAPINE [Suspect]
     Indication: PSYCHOTIC DISORDER
     Dosage: 10 MG, ORAL
     Route: 048
     Dates: start: 20050101
  2. EFFEXOR XL (VENLAFAZINE HYDROCHORIDE) [Concomitant]

REACTIONS (6)
  - ANXIETY [None]
  - DRUG EXPOSURE DURING PREGNANCY [None]
  - MAJOR DEPRESSION [None]
  - PRE-ECLAMPSIA [None]
  - PREGNANCY [None]
  - PSYCHOTIC DISORDER [None]
